FAERS Safety Report 7743497-1 (Version None)
Quarter: 2011Q3

REPORT INFORMATION
  Report Type: 
  Country: None (occurrence: None)
  Receive Date: 20110912
  Receipt Date: 20110204
  Transmission Date: 20111222
  Serious: Yes (Disabling, Other)
  Sender: FDA-Public Use
  Company Number: US-ABBOTT-10P-163-0661537-00

PATIENT
  Sex: Male
  Weight: 63.56 kg

DRUGS (7)
  1. DEPAKOTE [Suspect]
     Indication: EPILEPSY
     Route: 048
     Dates: start: 20080101
  2. LAMICTAL [Suspect]
     Indication: EPILEPSY
     Dates: start: 20110101
  3. MULTI-VITAMIN [Concomitant]
     Indication: VITAMIN SUPPLEMENTATION
     Route: 048
  4. CARNITOR [Concomitant]
     Indication: MEDICAL DIET
     Route: 048
  5. DEPAKOTE [Suspect]
     Indication: EPILEPSY
     Dates: start: 20030101, end: 20080101
  6. DIASTAT [Concomitant]
     Indication: CONVULSION
     Route: 054
  7. DEPAKOTE [Suspect]
     Indication: CONVULSION
     Route: 048
     Dates: start: 20020724, end: 20030101

REACTIONS (3)
  - DRUG INEFFECTIVE [None]
  - GRAND MAL CONVULSION [None]
  - CONVULSION [None]
